FAERS Safety Report 24901031 (Version 2)
Quarter: 2025Q1

REPORT INFORMATION
  Report Type: Report from Study
  Country: AU (occurrence: AU)
  Receive Date: 20250129
  Receipt Date: 20250218
  Transmission Date: 20250409
  Serious: Yes (Death, Other)
  Sender: TAKEDA
  Company Number: AU-TAKEDA-2025TUS009342

PATIENT
  Sex: Male

DRUGS (1)
  1. FRUQUINTINIB [Suspect]
     Active Substance: FRUQUINTINIB
     Indication: Rectal adenocarcinoma
     Dates: start: 20241024, end: 20241025

REACTIONS (2)
  - Rectal adenocarcinoma [Fatal]
  - Pulmonary haemorrhage [Fatal]
